FAERS Safety Report 7548178-5 (Version None)
Quarter: 2011Q2

REPORT INFORMATION
  Report Type: 
  Country: None (occurrence: None)
  Receive Date: 20110615
  Receipt Date: 20110603
  Transmission Date: 20111010
  Serious: Yes (Other)
  Sender: FDA-Public Use
  Company Number: AU-JNJFOC-20110508917

PATIENT
  Sex: Female

DRUGS (2)
  1. PENICILLIN [Concomitant]
  2. SIMPONI [Suspect]
     Indication: PSORIATIC ARTHROPATHY
     Route: 058

REACTIONS (3)
  - PERTUSSIS [None]
  - TONSILLITIS [None]
  - OROPHARYNGEAL PAIN [None]
